FAERS Safety Report 10733310 (Version 3)
Quarter: 2015Q3

REPORT INFORMATION
  Report Type: Spontaneous
  Country: US (occurrence: US)
  Receive Date: 20150123
  Receipt Date: 20150710
  Transmission Date: 20151125
  Serious: Yes (Other)
  Sender: FDA-Public Use
  Company Number: US-BAYER-2015-009117

PATIENT
  Age: 26 Year
  Sex: Female
  Weight: 90.7 kg

DRUGS (1)
  1. MIRENA [Suspect]
     Active Substance: LEVONORGESTREL
     Indication: CONTRACEPTION
     Dosage: 20 MCG/24HR, CONT
     Route: 015
     Dates: start: 200812, end: 201003

REACTIONS (7)
  - Genital haemorrhage [None]
  - Depression [None]
  - Embedded device [None]
  - Injury [None]
  - Uterine pain [None]
  - Emotional distress [None]
  - Pelvic pain [None]

NARRATIVE: CASE EVENT DATE: 2009
